FAERS Safety Report 20173717 (Version 2)
Quarter: 2021Q4

REPORT INFORMATION
  Report Type: Spontaneous
  Country: JP (occurrence: JP)
  Receive Date: 20211212
  Receipt Date: 20211222
  Transmission Date: 20220303
  Serious: Yes (Other)
  Sender: FDA-Public Use
  Company Number: JP-NOVARTISPH-NVSJ2021JP020245

PATIENT
  Sex: Female

DRUGS (3)
  1. ENTRESTO [Suspect]
     Active Substance: SACUBITRIL\VALSARTAN
     Indication: Cardiac failure
     Dosage: 100 MG
     Route: 048
  2. SAMSCA [Suspect]
     Active Substance: TOLVAPTAN
     Indication: Product used for unknown indication
     Dosage: 7.5 MG
     Route: 065
  3. AZOSEMIDE [Concomitant]
     Active Substance: AZOSEMIDE
     Indication: Product used for unknown indication
     Dosage: 45 MG
     Route: 065

REACTIONS (9)
  - Pyelonephritis [Unknown]
  - Pyrexia [Unknown]
  - Malaise [Unknown]
  - Urinary tract infection [Unknown]
  - Haematuria [Unknown]
  - C-reactive protein increased [Unknown]
  - N-terminal prohormone brain natriuretic peptide increased [Unknown]
  - Pleural effusion [Unknown]
  - Dyspnoea [Unknown]
